FAERS Safety Report 13895292 (Version 1)
Quarter: 2017Q3

REPORT INFORMATION
  Report Type: Spontaneous
  Country: FR (occurrence: FR)
  Receive Date: 20170823
  Receipt Date: 20170823
  Transmission Date: 20171127
  Serious: Yes (Hospitalization)
  Sender: FDA-Public Use
  Company Number: FR-ACCORD-057666

PATIENT
  Age: 31 Year
  Sex: Female

DRUGS (19)
  1. NICARDIPINE AGUETTANT [Suspect]
     Active Substance: NICARDIPINE
     Indication: PRODUCT USED FOR UNKNOWN INDICATION
     Route: 042
     Dates: start: 20170430, end: 20170430
  2. CIMETIDINE ARROW [Suspect]
     Active Substance: CIMETIDINE
     Indication: PRODUCT USED FOR UNKNOWN INDICATION
     Route: 048
     Dates: start: 20170430, end: 20170430
  3. NALADOR-500 [Suspect]
     Active Substance: SULPROSTONE
     Indication: UTERINE ATONY
     Dosage: STRENGTH: 500 UG?LYOPHILISATE FOR PARENTERAL USE?ADMINISTERED TWICE
     Route: 042
     Dates: start: 20170430, end: 20170430
  4. EXACYL [Suspect]
     Active Substance: TRANEXAMIC ACID
     Indication: UTERINE ATONY
     Dosage: STRENGTH: 0.5 GM/ 5ML
     Route: 042
     Dates: start: 20170430, end: 20170430
  5. SPASFON [Concomitant]
     Active Substance: PHLOROGLUCINOL\1,3,5-TRIMETHOXYBENZENE
     Dosage: MORNING, NOON, EVENING?ON 24, 28 AND 29-APR-2017, THEN TAKEN ORALLY ON 3, 4 AND 06-MAY-2017.
  6. FUMAFER [Concomitant]
     Active Substance: FERROUS FUMARATE
     Dosage: ONCE IN THE MORNING?ALSO TAKEN INTERMITTENTLY AFTER 30-APR-2017
  7. LIDOCAINE/ADRENALINE AGUETTANT [Suspect]
     Active Substance: EPINEPHRINE\LIDOCAINE
     Indication: PRODUCT USED FOR UNKNOWN INDICATION
     Route: 042
     Dates: start: 20170430, end: 20170430
  8. CLAMOXYL [Suspect]
     Active Substance: AMOXICILLIN\CLAVULANIC ACID
     Indication: BETA HAEMOLYTIC STREPTOCOCCAL INFECTION
     Dosage: STRENGTH: 1 G?MORNING, NOON, EVENING
     Route: 048
     Dates: start: 20170425, end: 20170430
  9. ALPRAZOLAM MYLAN [Suspect]
     Active Substance: ALPRAZOLAM
     Indication: PRODUCT USED FOR UNKNOWN INDICATION
     Dosage: STRENGTH: 0.25 MG
     Route: 048
     Dates: start: 20170428, end: 20170429
  10. CHIROCAINE [Suspect]
     Active Substance: LEVOBUPIVACAINE HYDROCHLORIDE
     Indication: ANAESTHESIA
     Route: 042
     Dates: start: 20170430, end: 20170430
  11. CEFAZOLIN MYLAN [Suspect]
     Active Substance: CEFAZOLIN
     Indication: PRODUCT USED FOR UNKNOWN INDICATION
     Route: 042
     Dates: start: 20170430, end: 20170430
  12. MORPHINE HYDROCHLORIDE AGUETTANT [Suspect]
     Active Substance: MORPHINE HYDROCHLORIDE
     Indication: PAIN
     Route: 042
     Dates: start: 20170430, end: 20170502
  13. CLOMIPRAMINE [Concomitant]
     Active Substance: CLOMIPRAMINE
     Dosage: ALSO TREATED SINCE EARLY MAY-2017 WHILE THE ACUTE PANCREATITIS HAD IMPROVED.
  14. ONDANSETRON ACCORD [Suspect]
     Active Substance: ONDANSETRON
     Indication: PRODUCT USED FOR UNKNOWN INDICATION
     Dosage: STRENGTH: 2 MG/ML
     Route: 042
     Dates: start: 20170430, end: 20170430
  15. SUFENTANIL MYLAN [Suspect]
     Active Substance: SUFENTANIL
     Indication: ANAESTHESIA
     Route: 042
     Dates: start: 20170430, end: 20170430
  16. FURADANTINE [Suspect]
     Active Substance: NITROFURANTOIN
     Indication: URINARY TRACT INFECTION
     Dosage: STRENGTH: 50 MG
     Route: 048
     Dates: start: 20170428, end: 20170429
  17. SYNTOCINON [Suspect]
     Active Substance: OXYTOCIN
     Indication: PRODUCT USED FOR UNKNOWN INDICATION
     Dates: start: 20170430, end: 20170430
  18. ATOSIBAN SUN [Suspect]
     Active Substance: ATOSIBAN
     Indication: THREATENED LABOUR
     Dosage: FROM 10-APR-2017 TO 13-APR-2017, 18 TO 19-APR-2017, FROM 25 TO 26-APR-2017 AND  28 TO 30-APR-2017
     Route: 042
     Dates: start: 20170428, end: 20170430
  19. NIFEDIPINE MYLAN L.P. [Suspect]
     Active Substance: NIFEDIPINE
     Indication: THREATENED LABOUR
     Dosage: STRENGTH: 20 MG?20 TO 21-APR-2017, FROM 23 TO 24-APR-2017 AND FROM 26 TO 28-APR-2017
     Route: 048
     Dates: start: 20170426, end: 20170428

REACTIONS (2)
  - Pancreatitis acute [Recovered/Resolved]
  - Maternal exposure during pregnancy [Unknown]

NARRATIVE: CASE EVENT DATE: 20170430
